FAERS Safety Report 6741462-4 (Version None)
Quarter: 2010Q2

REPORT INFORMATION
  Report Type: 
  Country: None (occurrence: None)
  Receive Date: 20100526
  Receipt Date: 20100518
  Transmission Date: 20101027
  Serious: Yes (Other)
  Sender: FDA-Public Use
  Company Number: US-JNJFOC-20100505573

PATIENT
  Age: 13 Year
  Sex: Female

DRUGS (3)
  1. RISPERDAL [Suspect]
     Indication: AUTISM
     Route: 048
  2. RISPERDAL [Suspect]
     Indication: ASPERGER'S DISORDER
     Route: 048
  3. INTUNIV [Concomitant]
     Indication: DRUG USE FOR UNKNOWN INDICATION
     Route: 048

REACTIONS (1)
  - VIRAL MYOSITIS [None]
